FAERS Safety Report 14148904 (Version 2)
Quarter: 2017Q4

REPORT INFORMATION
  Report Type: Spontaneous
  Country: NL (occurrence: NL)
  Receive Date: 20171101
  Receipt Date: 20171113
  Transmission Date: 20180321
  Serious: Yes (Other)
  Sender: FDA-Public Use
  Company Number: NL-PFIZER INC-2017470641

PATIENT
  Age: 63 Year
  Sex: Male
  Weight: 76 kg

DRUGS (5)
  1. GABAPENTIN. [Suspect]
     Active Substance: GABAPENTIN
     Indication: MERALGIA PARAESTHETICA
     Dosage: 300 MG, UNK
     Route: 048
     Dates: start: 20170907
  2. TRAMADOL. [Concomitant]
     Active Substance: TRAMADOL
     Indication: MERALGIA PARAESTHETICA
     Route: 048
     Dates: start: 2017
  3. GABAPENTIN. [Suspect]
     Active Substance: GABAPENTIN
     Dosage: 100 MG, UNK
     Dates: end: 20171025
  4. AMIODARON HCL [Concomitant]
     Active Substance: AMIODARONE HYDROCHLORIDE
     Dosage: UNK
     Route: 048
  5. APIXABAN [Concomitant]
     Active Substance: APIXABAN
     Dosage: UNK
     Route: 048

REACTIONS (4)
  - Coordination abnormal [Unknown]
  - Sleep disorder [Unknown]
  - Atrial fibrillation [Recovering/Resolving]
  - Arrhythmia [Recovering/Resolving]

NARRATIVE: CASE EVENT DATE: 2017
